FAERS Safety Report 4415094-7 (Version None)
Quarter: 2004Q3

REPORT INFORMATION
  Report Type: 
  Country: None (occurrence: None)
  Receive Date: 20040729
  Receipt Date: 20040719
  Transmission Date: 20050211
  Serious: Yes (Other)
  Sender: FDA-Public Use
  Company Number: S04-USA-04368-01

PATIENT
  Age: 75 Year
  Sex: Female

DRUGS (7)
  1. LEXAPRO [Suspect]
     Dates: end: 20040101
  2. ADVAIR [Suspect]
     Indication: CHRONIC OBSTRUCTIVE AIRWAYS DISEASE
     Dosage: 1 PUFF BID PO
     Route: 048
     Dates: start: 20040101, end: 20040101
  3. ADVAIR [Suspect]
     Indication: CHRONIC OBSTRUCTIVE AIRWAYS DISEASE
     Dosage: 1 PUFF QD PO
     Route: 048
     Dates: start: 20040101
  4. ADVAIR [Concomitant]
  5. LUTEIN [Concomitant]
  6. ST. JOHN'S WORT [Concomitant]
  7. MULTIVITAMIN [Concomitant]

REACTIONS (3)
  - EYE HAEMORRHAGE [None]
  - MACULAR DEGENERATION [None]
  - VISUAL DISTURBANCE [None]
